FAERS Safety Report 9495965 (Version 3)
Quarter: 2013Q3

REPORT INFORMATION
  Report Type: Report from Study
  Country: CZ (occurrence: CZ)
  Receive Date: 20130904
  Receipt Date: 20130906
  Transmission Date: 20140515
  Serious: Yes (Hospitalization)
  Sender: FDA-Public Use
  Company Number: CZ-ROCHE-1220358

PATIENT
  Age: 3 Year
  Sex: Male
  Weight: 13.9 kg

DRUGS (12)
  1. BEVACIZUMAB [Suspect]
     Indication: NEOPLASM MALIGNANT
     Dosage: LAST DOSE PRIOR TO SAE:03/JUN/2013
     Route: 042
     Dates: start: 20130510
  2. VINCRISTINE [Suspect]
     Indication: NEOPLASM MALIGNANT
     Dosage: DATE OF LAST DOSE PRIOR TO SAE WAS 03/JUN/2013
     Route: 040
     Dates: start: 20130419
  3. DACTINOMYCIN [Suspect]
     Indication: NEOPLASM MALIGNANT
     Dosage: DATE OF LAST DOSE PRIOR TO SAE WAS 03/JUN/2013
     Route: 040
     Dates: start: 20130419
  4. DACTINOMYCIN [Suspect]
     Dosage: REDUCED DOSE
     Route: 065
     Dates: start: 20130510
  5. DOXORUBICIN [Suspect]
     Indication: NEOPLASM MALIGNANT
     Dosage: DATE OF LAST DOSE PRIOR TO SAE WAS 04/JUN/2013
     Route: 042
     Dates: start: 20130419
  6. IFOSFAMIDE [Suspect]
     Indication: NEOPLASM MALIGNANT
     Dosage: DATE OF LAST DOSE PRIOR TO SAE WAS 04/JUN/2013
     Route: 042
     Dates: start: 20130419
  7. FUROSEMIDE [Concomitant]
     Route: 065
     Dates: start: 20130614, end: 20130619
  8. NOVALGIN [Concomitant]
     Route: 065
     Dates: start: 20130616, end: 20130617
  9. PERFALGAN [Concomitant]
     Route: 065
     Dates: start: 20130617, end: 20130617
  10. SALINE SOLUTION [Concomitant]
     Route: 065
     Dates: start: 20130617, end: 20130622
  11. AMBROBENE [Concomitant]
     Route: 065
     Dates: start: 20130611, end: 20130618
  12. VIGANTOL [Concomitant]
     Route: 065
     Dates: start: 20130618

REACTIONS (3)
  - Stomatitis [Recovered/Resolved]
  - Febrile neutropenia [Recovered/Resolved]
  - Tongue haemorrhage [Recovered/Resolved]
